FAERS Safety Report 8951697 (Version 1)
Quarter: 2012Q4

REPORT INFORMATION
  Report Type: 
  Country: GB (occurrence: GB)
  Receive Date: 20121204
  Receipt Date: 20121204
  Transmission Date: 20130627
  Serious: Yes (Hospitalization)
  Sender: FDA-Public Use
  Company Number: GB-PFIZER INC-2012299719

PATIENT
  Age: 79 Year
  Sex: Female
  Weight: 75 kg

DRUGS (3)
  1. GENOTROPIN [Suspect]
     Dosage: UNK, 1x/day, 7 injections/week
     Route: 058
     Dates: start: 20051013
  2. HYDROCORTISONE [Concomitant]
     Indication: ACTH DECREASED
     Dosage: UNK
     Dates: start: 19941115
  3. DHEA [Concomitant]
     Dosage: UNK
     Dates: start: 20051013

REACTIONS (1)
  - Blood cortisol abnormal [Unknown]
